FAERS Safety Report 25009692 (Version 1)
Quarter: 2025Q1

REPORT INFORMATION
  Report Type: Spontaneous
  Country: US (occurrence: US)
  Receive Date: 20250225
  Receipt Date: 20250225
  Transmission Date: 20250408
  Serious: Yes (Other)
  Sender: BLUEPRINT MEDICINES
  Company Number: US-Blueprint Medicines Corporation-2025-AER-00339

PATIENT
  Age: 39 Year
  Sex: Female

DRUGS (1)
  1. AYVAKIT [Suspect]
     Active Substance: AVAPRITINIB
     Indication: Haematopoietic neoplasm
     Route: 065
     Dates: start: 20250110

REACTIONS (13)
  - Anaphylactic reaction [Unknown]
  - Blood glucose increased [Unknown]
  - Mean cell haemoglobin increased [Unknown]
  - Neutrophil count increased [Unknown]
  - Immature granulocyte count increased [Unknown]
  - White blood cell count increased [Unknown]
  - Lymphocyte count decreased [Unknown]
  - Vomiting [Unknown]
  - Abdominal pain upper [Unknown]
  - Heart rate increased [Unknown]
  - Hypocalcaemia [Unknown]
  - Condition aggravated [Unknown]
  - Swelling face [Unknown]

NARRATIVE: CASE EVENT DATE: 20250211
